FAERS Safety Report 10249651 (Version 1)
Quarter: 2014Q2

REPORT INFORMATION
  Report Type: Spontaneous
  Country: US (occurrence: None)
  Receive Date: 20140618
  Receipt Date: 20140618
  Transmission Date: 20141212
  Serious: Yes (Hospitalization)
  Sender: FDA-Public Use
  Company Number: None

PATIENT
  Age: 54 Year
  Sex: Female
  Weight: 99.79 kg

DRUGS (1)
  1. LISINOPRIL HCTZ 20/25MG? [Suspect]
     Indication: HYPERTENSION
     Dosage: 1 PILL, ONCE DAILY, TAKEN BY MOUTH
     Route: 048
     Dates: start: 20100315, end: 20140615

REACTIONS (4)
  - Hypoaesthesia oral [None]
  - Lip swelling [None]
  - Cheilitis [None]
  - Lip pain [None]
